FAERS Safety Report 7290928-X (Version None)
Quarter: 2011Q1

REPORT INFORMATION
  Report Type: 
  Country: None (occurrence: None)
  Receive Date: 20110201
  Receipt Date: 20110128
  Transmission Date: 20110831
  Serious: Yes (Death, Hospitalization)
  Sender: FDA-Public Use
  Company Number: 2009SP000826

PATIENT
  Age: 63 Year
  Sex: Female
  Weight: 51 kg

DRUGS (18)
  1. DUOLAX [Concomitant]
  2. BEARSE [Concomitant]
  3. MUTERAN /00082801/ [Concomitant]
  4. MUCOMYST [Concomitant]
  5. ZOFRAN [Concomitant]
  6. DUOLAX [Concomitant]
  7. MACPERAN [Concomitant]
  8. TOPAMAX [Concomitant]
  9. K CONTIN [Concomitant]
  10. ACTIFED [Concomitant]
  11. JEIDIN [Concomitant]
  12. MAGNESIUM OXIDE [Concomitant]
  13. TEMOZOLOMIDE [Suspect]
     Indication: GLIOBLASTOMA MULTIFORME
     Dosage: 100 MG; PO
     Route: 048
     Dates: start: 20080925, end: 20090110
  14. TOPIRAMATE [Concomitant]
  15. MEGACE [Concomitant]
  16. TYLENOL ER [Concomitant]
  17. VESICARE [Concomitant]
  18. SOLONDO [Concomitant]

REACTIONS (5)
  - BLOOD GLUCOSE INCREASED [None]
  - CARDIAC ARREST [None]
  - CORONARY ARTERY EMBOLISM [None]
  - HAEMATOCRIT DECREASED [None]
  - PULMONARY EMBOLISM [None]
